FAERS Safety Report 12735950 (Version 1)
Quarter: 2016Q3

REPORT INFORMATION
  Report Type: Spontaneous
  Country: US (occurrence: US)
  Receive Date: 20160912
  Receipt Date: 20160912
  Transmission Date: 20161109
  Serious: No
  Sender: FDA-Public Use
  Company Number: US-TEVA-681352USA

PATIENT
  Age: 61 Year
  Sex: Female

DRUGS (18)
  1. CYMBALTA [Concomitant]
     Active Substance: DULOXETINE HYDROCHLORIDE
  2. LORATADINE. [Concomitant]
     Active Substance: LORATADINE
  3. DEXEDRINE [Concomitant]
     Active Substance: DEXTROAMPHETAMINE SULFATE
  4. OXYBUTYNIN [Concomitant]
     Active Substance: OXYBUTYNIN
  5. AMPYRA [Concomitant]
     Active Substance: DALFAMPRIDINE
  6. MELOXICAM. [Concomitant]
     Active Substance: MELOXICAM
  7. NUVIGIL [Concomitant]
     Active Substance: ARMODAFINIL
  8. DEXTROAMPHETAMINE. [Concomitant]
     Active Substance: DEXTROAMPHETAMINE
  9. AMITRIPTYLINE [Concomitant]
     Active Substance: AMITRIPTYLINE
  10. ABILIFY [Concomitant]
     Active Substance: ARIPIPRAZOLE
  11. COPAXONE [Suspect]
     Active Substance: GLATIRAMER ACETATE
     Route: 058
     Dates: start: 20101221
  12. SEROQUEL [Concomitant]
     Active Substance: QUETIAPINE FUMARATE
  13. BENADRYL [Concomitant]
     Active Substance: DIPHENHYDRAMINE HYDROCHLORIDE
  14. OMEPRAZOL [Concomitant]
     Active Substance: OMEPRAZOLE
  15. BUPROPION. [Concomitant]
     Active Substance: BUPROPION
  16. ESTRADIOL. [Concomitant]
     Active Substance: ESTRADIOL
  17. CETIRIZINE [Concomitant]
     Active Substance: CETIRIZINE HYDROCHLORIDE
  18. BACLOFEN. [Concomitant]
     Active Substance: BACLOFEN

REACTIONS (4)
  - Fall [Unknown]
  - Walking aid user [Unknown]
  - Depression [Unknown]
  - Balance disorder [Unknown]

NARRATIVE: CASE EVENT DATE: 201607
